FAERS Safety Report 13009587 (Version 1)
Quarter: 2016Q4

REPORT INFORMATION
  Report Type: Report from Study
  Country: None (occurrence: BR)
  Receive Date: 20161208
  Receipt Date: 20161208
  Transmission Date: 20170207
  Serious: Yes (Hospitalization, Other)
  Sender: FDA-Public Use
  Company Number: BR-ABBVIE-16P-020-1804315-00

PATIENT
  Sex: Male
  Weight: 80 kg

DRUGS (7)
  1. PHENOBARBITAL. [Concomitant]
     Active Substance: PHENOBARBITAL
     Indication: BEDRIDDEN
     Dosage: DAILY DOSE: 1 TABLET AT NIGHT
     Dates: start: 2009
  2. MACRODANTIN [Concomitant]
     Active Substance: NITROFURANTOIN
     Indication: BEDRIDDEN
     Dates: start: 2009
  3. SYNTHROID [Suspect]
     Active Substance: LEVOTHYROXINE SODIUM
     Indication: HYPOTHYROIDISM
     Dosage: DAILY DOSE: 1 TABLET (75 MCG) IN THE MORNING; FASTING
     Route: 048
     Dates: start: 2010
  4. PREDNISONE. [Concomitant]
     Active Substance: PREDNISONE
     Indication: BEDRIDDEN
     Dosage: DAILY DOE: 1 TABLET IN MORNING
     Dates: start: 2009
  5. PHENYTOIN. [Concomitant]
     Active Substance: PHENYTOIN
     Indication: BEDRIDDEN
     Dosage: IN MORNING AND NIGHT (DAILY DOSE: 1 TABLET)
     Dates: start: 2009
  6. TAMSULOSIN HYDROCHLORIDE. [Concomitant]
     Active Substance: TAMSULOSIN HYDROCHLORIDE
     Indication: BEDRIDDEN
     Dosage: DAILY DOSE: 1 TABLET IN MORNING
     Dates: start: 2009
  7. OMEPRAZOLE. [Concomitant]
     Active Substance: OMEPRAZOLE
     Indication: BEDRIDDEN
     Dosage: DAILY DOSE: 1 TABLET IN MORNING, SOON AFTER SYNTHROID
     Dates: start: 2009

REACTIONS (2)
  - Thrombosis [Not Recovered/Not Resolved]
  - Erysipelas [Not Recovered/Not Resolved]
